FAERS Safety Report 7534951-6 (Version None)
Quarter: 2011Q2

REPORT INFORMATION
  Report Type: 
  Country: None (occurrence: None)
  Receive Date: 20110609
  Receipt Date: 20081230
  Transmission Date: 20111010
  Serious: Yes (Hospitalization, Other)
  Sender: FDA-Public Use
  Company Number: PHHY2008CA33517

PATIENT
  Sex: Female

DRUGS (1)
  1. SANDOSTATIN LAR [Suspect]
     Indication: NEUROENDOCRINE CARCINOMA
     Dosage: 40 MG, TIW
     Route: 030
     Dates: start: 20060911

REACTIONS (2)
  - VISUAL FIELD DEFECT [None]
  - CEREBRAL HAEMORRHAGE [None]
